FAERS Safety Report 8379448-9 (Version None)
Quarter: 2012Q2

REPORT INFORMATION
  Report Type: 
  Country: None (occurrence: None)
  Receive Date: 20120523
  Receipt Date: 20120517
  Transmission Date: 20120825
  Serious: No
  Sender: FDA-Public Use
  Company Number: US-PFIZER INC-2012120595

PATIENT
  Sex: Male
  Weight: 100.68 kg

DRUGS (2)
  1. ADVIL PM [Suspect]
     Dosage: UNK, ONCE AT NIGHT
     Route: 048
     Dates: start: 20120516
  2. TAMSULOSIN HYDROCHLORIDE [Suspect]
     Indication: PROSTATIC DISORDER
     Dosage: 4 MG, DAILY AT NIGHT
     Dates: start: 20120101

REACTIONS (1)
  - FATIGUE [None]
